FAERS Safety Report 4976445-8 (Version None)
Quarter: 2006Q2

REPORT INFORMATION
  Report Type: 
  Country: None (occurrence: None)
  Receive Date: 20060412
  Receipt Date: 20060402
  Transmission Date: 20061013
  Serious: Yes (Other)
  Sender: FDA-Public Use
  Company Number: 2006045666

PATIENT
  Age: 30 Year
  Sex: Male
  Weight: 102.0593 kg

DRUGS (4)
  1. GEODON [Suspect]
     Indication: BIPOLAR DISORDER
     Dosage: 120 MG (60 MG, 2 IN 1 D), ORAL
     Route: 048
  2. GEODON [Suspect]
     Indication: MANIA
     Dosage: 120 MG (60 MG, 2 IN 1 D), ORAL
     Route: 048
  3. GEODON [Suspect]
     Indication: PSYCHOTIC DISORDER
     Dosage: 120 MG (60 MG, 2 IN 1 D), ORAL
     Route: 048
  4. LAMICTAL [Concomitant]

REACTIONS (10)
  - DRUG EFFECT DECREASED [None]
  - DRY EYE [None]
  - DYSPHONIA [None]
  - EUPHORIC MOOD [None]
  - GASTRIC BYPASS [None]
  - HEADACHE [None]
  - HYPOGLYCAEMIA [None]
  - NERVOUS SYSTEM DISORDER [None]
  - PANIC DISORDER [None]
  - STRESS [None]
